FAERS Safety Report 16767845 (Version 1)
Quarter: 2019Q3

REPORT INFORMATION
  Report Type: Report from Study
  Country: EG (occurrence: EG)
  Receive Date: 20190903
  Receipt Date: 20190903
  Transmission Date: 20191005
  Serious: Yes (Death, Hospitalization)
  Sender: FDA-Public Use
  Company Number: EG-SEATTLE GENETICS-2019SGN02411

PATIENT
  Sex: Female

DRUGS (1)
  1. BRENTUXIMAB VEDOTIN-MPI [Suspect]
     Active Substance: BRENTUXIMAB VEDOTIN
     Indication: HODGKIN^S DISEASE
     Dosage: UNK
     Route: 042
     Dates: start: 20190625, end: 20190824

REACTIONS (7)
  - Blood glucose increased [Unknown]
  - Tachycardia [Unknown]
  - Death [Fatal]
  - Dyspnoea [Unknown]
  - Hypersensitivity [Unknown]
  - Bone pain [Unknown]
  - Fatigue [Unknown]
